FAERS Safety Report 17241472 (Version 1)
Quarter: 2020Q1

REPORT INFORMATION
  Report Type: Report from Study
  Country: BE (occurrence: BE)
  Receive Date: 20200107
  Receipt Date: 20200107
  Transmission Date: 20200409
  Serious: No
  Sender: FDA-Public Use
  Company Number: BE-BEH-2019104480

PATIENT
  Sex: Female

DRUGS (1)
  1. HIZENTRA [Suspect]
     Active Substance: HUMAN IMMUNOGLOBULIN G
     Dosage: 12 GRAM/60 ML
     Route: 058
     Dates: end: 201912

REACTIONS (4)
  - Injection site pain [Unknown]
  - Administration site pain [Unknown]
  - Injection site erythema [Unknown]
  - Injection site induration [Unknown]
